FAERS Safety Report 21572497 (Version 2)
Quarter: 2022Q4

REPORT INFORMATION
  Report Type: Report from Study
  Country: CA (occurrence: CA)
  Receive Date: 20221109
  Receipt Date: 20221205
  Transmission Date: 20230113
  Serious: Yes (Death, Hospitalization, Other)
  Sender: FDA-Public Use
  Company Number: CA-OTSUKA-2021_007121

PATIENT
  Age: 80 Year
  Sex: Male

DRUGS (2)
  1. CEDAZURIDINE\DECITABINE [Suspect]
     Active Substance: CEDAZURIDINE\DECITABINE
     Indication: Myelodysplastic syndrome
     Dosage: 135 MG (35 MG DECITABINE AND 100 MG CEDAZURIDINE) 5 PER CYCLE
     Route: 065
     Dates: start: 20201126
  2. CEDAZURIDINE\DECITABINE [Suspect]
     Active Substance: CEDAZURIDINE\DECITABINE
     Dosage: 3 PILLS PER CYCLE, UNK
     Route: 065
     Dates: start: 202203

REACTIONS (10)
  - Death [Fatal]
  - Full blood count abnormal [Unknown]
  - Hypotension [Unknown]
  - Fall [Unknown]
  - Cytopenia [Unknown]
  - White blood cell count decreased [Unknown]
  - Biopsy bone marrow [Unknown]
  - Full blood count abnormal [Unknown]
  - Therapy interrupted [Unknown]
  - Product use issue [Unknown]

NARRATIVE: CASE EVENT DATE: 20220301
